FAERS Safety Report 5548172-X (Version None)
Quarter: 2007Q4

REPORT INFORMATION
  Report Type: 
  Country: None (occurrence: None)
  Receive Date: 20071211
  Receipt Date: 20071204
  Transmission Date: 20080405
  Serious: Yes (Other)
  Sender: FDA-Public Use
  Company Number: US-GILEAD-2007-0014510

PATIENT
  Sex: Male
  Weight: 72.64 kg

DRUGS (11)
  1. LETAIRIS [Suspect]
     Indication: PULMONARY HYPERTENSION
     Route: 048
     Dates: start: 20070906
  2. LASIX [Concomitant]
     Indication: PULMONARY HYPERTENSION
     Route: 048
  3. LASIX [Concomitant]
     Indication: CARDIAC FAILURE CONGESTIVE
  4. DIGOXIN [Concomitant]
     Indication: CARDIAC FAILURE CONGESTIVE
     Route: 048
  5. VIAGRA [Concomitant]
     Indication: PULMONARY HYPERTENSION
     Route: 048
  6. WARFARIN SODIUM [Concomitant]
     Indication: ANTICOAGULANT THERAPY
     Route: 048
  7. WARFARIN SODIUM [Concomitant]
     Route: 048
  8. VENTAVIS [Concomitant]
     Indication: PULMONARY HYPERTENSION
     Route: 055
  9. OFLOXACIN [Concomitant]
     Indication: EAR INFECTION
     Route: 047
  10. PREDNISONE ACETATE [Concomitant]
     Indication: EAR DISORDER
     Route: 047
  11. OXYGEN [Concomitant]
     Indication: PULMONARY HYPERTENSION
     Route: 045

REACTIONS (2)
  - EAR DISCOMFORT [None]
  - TINNITUS [None]
